FAERS Safety Report 24299065 (Version 1)
Quarter: 2024Q3

REPORT INFORMATION
  Report Type: Spontaneous
  Country: LU (occurrence: LU)
  Receive Date: 20240909
  Receipt Date: 20240909
  Transmission Date: 20241017
  Serious: Yes (Life-Threatening, Hospitalization, Disabling)
  Sender: ELI LILLY AND CO
  Company Number: None

PATIENT
  Age: 69 Year
  Sex: Male
  Weight: 77 kg

DRUGS (15)
  1. PEMETREXED [Suspect]
     Active Substance: PEMETREXED
     Indication: Lung adenocarcinoma
     Dosage: 966.33 MG, CYCLICAL
     Route: 042
     Dates: start: 20240625, end: 20240625
  2. PEMETREXED [Suspect]
     Active Substance: PEMETREXED
     Dosage: 966.33 MG, CYCLICAL
     Route: 042
     Dates: start: 20240716, end: 20240716
  3. OPDIVO [Suspect]
     Active Substance: NIVOLUMAB
     Indication: Lung adenocarcinoma
     Dosage: 360 MG, CYCLICAL
     Route: 042
     Dates: start: 20240716, end: 20240716
  4. KEYTRUDA [Suspect]
     Active Substance: PEMBROLIZUMAB
     Indication: Lung adenocarcinoma
     Dosage: UNK UNK, CYCLICAL
     Route: 042
     Dates: start: 20240625, end: 20240625
  5. CISPLATIN [Suspect]
     Active Substance: CISPLATIN
     Indication: Lung adenocarcinoma
     Dosage: 144.95 MG, CYCLICAL
     Route: 042
     Dates: start: 20240625, end: 20240625
  6. CISPLATIN [Suspect]
     Active Substance: CISPLATIN
     Dosage: 144.95 MG, CYCLICAL
     Route: 042
     Dates: start: 20240716, end: 20240716
  7. EUTHYROX [Concomitant]
     Active Substance: LEVOTHYROXINE SODIUM
     Indication: Hypothyroidism
     Dosage: 125 UG
     Route: 048
  8. AMLODIPINE [Concomitant]
     Active Substance: AMLODIPINE BESYLATE
     Indication: Hypertension
     Dosage: 5 MG
     Route: 048
  9. BACTRIM [Concomitant]
     Active Substance: SULFAMETHOXAZOLE\TRIMETHOPRIM
     Indication: Antifungal prophylaxis
     Dosage: 3 DOSAGE FORM, OTHER (3 TIMES A WEEK)
     Route: 048
  10. DEXPANTHENOL [Concomitant]
     Active Substance: DEXPANTHENOL
     Indication: Gastrooesophageal reflux disease
     Dosage: 40 MG
     Route: 048
  11. ATORVASTATIN CALCIUM\EZETIMIBE [Concomitant]
     Active Substance: ATORVASTATIN CALCIUM\EZETIMIBE
     Indication: Cardiovascular event prophylaxis
     Dosage: 1 DOSAGE FORM
     Route: 048
  12. NOBITEN [NEBIVOLOL] [Concomitant]
     Indication: Hypertension
     Dosage: 5 MG
     Route: 048
  13. ASPIRIN [Concomitant]
     Active Substance: ASPIRIN
     Indication: Cerebrovascular accident prophylaxis
     Dosage: 100 MG
     Route: 048
  14. FOLIC ACID [Concomitant]
     Active Substance: FOLIC ACID
     Indication: Vitamin supplementation
     Dosage: 4 MG
     Route: 048
  15. ALLOPURINOL [Concomitant]
     Active Substance: ALLOPURINOL
     Indication: Hyperuricaemia
     Dosage: 100 MG
     Route: 048

REACTIONS (4)
  - Cytokine release syndrome [Recovering/Resolving]
  - Renal tubular disorder [Recovering/Resolving]
  - Interstitial lung disease [Recovering/Resolving]
  - Septic shock [Recovering/Resolving]

NARRATIVE: CASE EVENT DATE: 20240729
